FAERS Safety Report 12897016 (Version 1)
Quarter: 2016Q4

REPORT INFORMATION
  Report Type: Spontaneous
  Country: US (occurrence: US)
  Receive Date: 20161028
  Receipt Date: 20161028
  Transmission Date: 20170207
  Serious: Yes (Other)
  Sender: FDA-Public Use
  Company Number: None

PATIENT
  Age: 43 Year
  Sex: Female
  Weight: 58.5 kg

DRUGS (1)
  1. ZOWIN-10 [Suspect]
     Active Substance: HYDROXYZINE HYDROCHLORIDE
     Indication: ANXIETY
     Dosage: QUANTITY:180 TABLET(S); AS NEEDED; ORAL?
     Route: 048

REACTIONS (6)
  - Product quality issue [None]
  - Product coating issue [None]
  - Product difficult to swallow [None]
  - Product physical issue [None]
  - Product size issue [None]
  - Anxiety [None]

NARRATIVE: CASE EVENT DATE: 20160629
